FAERS Safety Report 15451196 (Version 1)
Quarter: 2018Q3

REPORT INFORMATION
  Report Type: Spontaneous
  Country: US (occurrence: US)
  Receive Date: 20180927
  Receipt Date: 20180927
  Transmission Date: 20181010
  Serious: Yes (Death)
  Sender: FDA-Public Use
  Company Number: None

PATIENT
  Age: 89 Year
  Sex: Male

DRUGS (9)
  1. FREESTYLE LITE STRIPS [Concomitant]
     Dates: start: 20180502, end: 20180922
  2. REPAGLINIDE 0.5MG [Concomitant]
     Active Substance: REPAGLINIDE
     Dates: start: 20180901, end: 20180922
  3. CARVEDILOL 3.125MG [Concomitant]
     Dates: start: 20180507, end: 20180922
  4. ATORVASTATIN 40MG [Concomitant]
     Active Substance: ATORVASTATIN
     Dates: start: 20180409, end: 20180922
  5. PREDNISONE 5MG [Concomitant]
     Active Substance: PREDNISONE
     Dates: start: 20180806, end: 20180922
  6. OMEPRAZOLE 40MG [Concomitant]
     Active Substance: OMEPRAZOLE
     Dates: start: 20171106, end: 20180922
  7. ZYTIGA [Suspect]
     Active Substance: ABIRATERONE ACETATE
     Indication: PROSTATE CANCER
     Route: 048
     Dates: start: 20180424, end: 20180922
  8. LOSARTAN 100MG [Concomitant]
     Active Substance: LOSARTAN
     Dates: start: 20180514, end: 20180922
  9. WARFARIN 4MG [Concomitant]
     Active Substance: WARFARIN
     Dates: start: 20180824, end: 20180922

REACTIONS (1)
  - Death [None]

NARRATIVE: CASE EVENT DATE: 20180922
